FAERS Safety Report 21462171 (Version 3)
Quarter: 2024Q4

REPORT INFORMATION
  Report Type: Spontaneous
  Country: US (occurrence: US)
  Receive Date: 20221016
  Receipt Date: 20241017
  Transmission Date: 20250115
  Serious: No
  Sender: SANOFI AVENTIS
  Company Number: US-SA-SAC20221012000502

PATIENT
  Age: 29 Year
  Sex: Male
  Weight: 172.34 kg

DRUGS (1)
  1. DUPIXENT [Suspect]
     Active Substance: DUPILUMAB
     Indication: Dermatitis atopic
     Dosage: 300 MG, QOW
     Route: 058
     Dates: start: 20211004

REACTIONS (6)
  - Eczema [Unknown]
  - Ear dryness [Recovering/Resolving]
  - Rash pruritic [Recovering/Resolving]
  - Hypoaesthesia [Not Recovered/Not Resolved]
  - Skin exfoliation [Recovering/Resolving]
  - Therapeutic product effect incomplete [Unknown]

NARRATIVE: CASE EVENT DATE: 20240401
